FAERS Safety Report 22720893 (Version 3)
Quarter: 2023Q4

REPORT INFORMATION
  Report Type: Report from Study
  Country: TW (occurrence: TW)
  Receive Date: 20230719
  Receipt Date: 20231221
  Transmission Date: 20240109
  Serious: Yes (Death, Hospitalization)
  Sender: FDA-Public Use
  Company Number: TW-ABBVIE-5331023

PATIENT
  Age: 86 Year
  Sex: Female

DRUGS (2)
  1. HUMIRA [Suspect]
     Active Substance: ADALIMUMAB
     Indication: Rheumatoid arthritis
     Route: 058
     Dates: start: 20220411, end: 20230711
  2. HUMIRA [Suspect]
     Active Substance: ADALIMUMAB
     Dosage: DOSE REDUCED
     Route: 058
     Dates: start: 2023

REACTIONS (5)
  - Pneumonia [Fatal]
  - C-reactive protein increased [Unknown]
  - Sputum retention [Unknown]
  - Sputum retention [Unknown]
  - Malnutrition [Unknown]

NARRATIVE: CASE EVENT DATE: 20230619
